FAERS Safety Report 9805304 (Version 1)
Quarter: 2014Q1

REPORT INFORMATION
  Report Type: Spontaneous
  Country: US (occurrence: None)
  Receive Date: 20140108
  Receipt Date: 20140108
  Transmission Date: 20141002
  Serious: Yes (Disabling, Other)
  Sender: FDA-Public Use
  Company Number: None

PATIENT
  Age: 80 Year
  Sex: Female
  Weight: 49.9 kg

DRUGS (5)
  1. FORTEO [Suspect]
     Indication: OSTEOPOROSIS
     Dates: start: 20120208, end: 20130403
  2. NIFEDIPINE [Concomitant]
  3. PROLIA [Concomitant]
  4. VITAMIN D [Concomitant]
  5. CALCIUM WITH D [Concomitant]

REACTIONS (3)
  - Bone disorder [None]
  - Spinal disorder [None]
  - Bone density decreased [None]
